FAERS Safety Report 8758975 (Version 3)
Quarter: 2013Q4

REPORT INFORMATION
  Report Type: Spontaneous
  Country: US (occurrence: US)
  Receive Date: 20120829
  Receipt Date: 20131031
  Transmission Date: 20140711
  Serious: No
  Sender: FDA-Public Use
  Company Number: US-009507513-2012SP036006

PATIENT
  Sex: Female

DRUGS (2)
  1. NEXPLANON [Suspect]
  2. NEXPLANON [Suspect]

REACTIONS (1)
  - Medical device complication [Recovered/Resolved]
